FAERS Safety Report 10853451 (Version 1)
Quarter: 2015Q1

REPORT INFORMATION
  Report Type: Spontaneous
  Country: US (occurrence: US)
  Receive Date: 20150223
  Receipt Date: 20150223
  Transmission Date: 20150721
  Serious: No
  Sender: FDA-Public Use
  Company Number: US-BIOGENIDEC-2015BI012484

PATIENT
  Sex: Female

DRUGS (1)
  1. TECFIDERA [Suspect]
     Active Substance: DIMETHYL FUMARATE
     Indication: MULTIPLE SCLEROSIS
     Dates: start: 20140911, end: 20141130

REACTIONS (8)
  - Communication disorder [Recovered/Resolved]
  - Dyskinesia [Not Recovered/Not Resolved]
  - Hangover [Not Recovered/Not Resolved]
  - Inflammation [Not Recovered/Not Resolved]
  - Nervous system disorder [Not Recovered/Not Resolved]
  - Gastritis [Not Recovered/Not Resolved]
  - Cognitive disorder [Recovered/Resolved]
  - Dyspepsia [Recovered/Resolved]
